FAERS Safety Report 9121280 (Version 2)
Quarter: 2013Q1

REPORT INFORMATION
  Report Type: Spontaneous
  Country: BE (occurrence: BE)
  Receive Date: 20130225
  Receipt Date: 20130301
  Transmission Date: 20140127
  Serious: Yes (Death, Hospitalization, Other)
  Sender: FDA-Public Use
  Company Number: BE-PFIZER INC-2013063861

PATIENT
  Age: 35 Year
  Sex: Female

DRUGS (1)
  1. VENLAFAXINE [Suspect]
     Dosage: 90 TABLETS OF 150 MG

REACTIONS (23)
  - Overdose [Fatal]
  - Cardiac arrest [Fatal]
  - Status epilepticus [Unknown]
  - Sinus tachycardia [Unknown]
  - Hypotension [Unknown]
  - Anuria [Unknown]
  - Agitation [Unknown]
  - Confusional state [Unknown]
  - Hallucination, visual [Unknown]
  - Tremor [Unknown]
  - Mydriasis [Unknown]
  - Nystagmus [Unknown]
  - Body temperature increased [Unknown]
  - Blood lactic acid increased [Unknown]
  - Ejection fraction decreased [Unknown]
  - Electrocardiogram QRS complex prolonged [Unknown]
  - Electrocardiogram QT prolonged [Unknown]
  - Atrial fibrillation [Unknown]
  - Oxygen saturation decreased [Unknown]
  - Hypoglycaemia [Unknown]
  - Troponin I increased [Unknown]
  - International normalised ratio increased [Unknown]
  - Blood creatine phosphokinase increased [Unknown]
